FAERS Safety Report 9534954 (Version 12)
Quarter: 2015Q4

REPORT INFORMATION
  Report Type: Spontaneous
  Country: CA (occurrence: CA)
  Receive Date: 20130918
  Receipt Date: 20151013
  Transmission Date: 20160305
  Serious: Yes (Hospitalization, Other)
  Sender: FDA-Public Use
  Company Number: CA-GLAXOSMITHKLINE-A0964252A

PATIENT
  Age: 66 Year
  Sex: Female
  Weight: 49 kg

DRUGS (13)
  1. BENLYSTA [Suspect]
     Active Substance: BELIMUMAB
     Dosage: 120 UNK, UNK
  2. BENLYSTA [Suspect]
     Active Substance: BELIMUMAB
     Dosage: 450 MG, UNK
  3. PREDNISONE. [Suspect]
     Active Substance: PREDNISONE
     Dosage: 10 MG, UNK
  4. ADVIL [Concomitant]
     Active Substance: IBUPROFEN
     Indication: PRODUCT USED FOR UNKNOWN INDICATION
     Dosage: 400 MG, UNK
  5. BENLYSTA [Suspect]
     Active Substance: BELIMUMAB
     Indication: SYSTEMIC LUPUS ERYTHEMATOSUS
     Dosage: AT WEEK 0, 2, 4 AND THEN EVERY 4 WEEKS
     Route: 042
     Dates: start: 20111017, end: 20131008
  6. BENLYSTA [Suspect]
     Active Substance: BELIMUMAB
     Dosage: UNK
     Dates: start: 20111017, end: 20131008
  7. .ALPHA.-LIPOIC ACID [Concomitant]
     Active Substance: .ALPHA.-LIPOIC ACID
     Indication: PAIN IN EXTREMITY
     Dosage: UNK
  8. BENLYSTA [Suspect]
     Active Substance: BELIMUMAB
     Dosage: 500 MG, UNK
     Route: 042
  9. BENLYSTA [Suspect]
     Active Substance: BELIMUMAB
     Dosage: 400 UNK, UNK
  10. BENLYSTA [Suspect]
     Active Substance: BELIMUMAB
     Dosage: 500 MG, EVERY 4 WEEKS
     Route: 042
     Dates: start: 20141112
  11. BENLYSTA [Suspect]
     Active Substance: BELIMUMAB
     Dosage: 120 UNK, UNK
  12. PREDNISONE. [Suspect]
     Active Substance: PREDNISONE
     Indication: PRODUCT USED FOR UNKNOWN INDICATION
     Dosage: 5 MG, Z
     Route: 065
  13. .ALPHA.-LIPOIC ACID [Concomitant]
     Active Substance: .ALPHA.-LIPOIC ACID
     Indication: BURNING SENSATION

REACTIONS (26)
  - Systemic lupus erythematosus [Unknown]
  - Asthenia [Not Recovered/Not Resolved]
  - Fatigue [Not Recovered/Not Resolved]
  - Pallor [Unknown]
  - Skin fissures [Not Recovered/Not Resolved]
  - Pruritus [Unknown]
  - Pain in extremity [Not Recovered/Not Resolved]
  - Pyrexia [Recovered/Resolved]
  - Peripheral swelling [Not Recovered/Not Resolved]
  - Tearfulness [Not Recovered/Not Resolved]
  - Sjogren^s syndrome [Unknown]
  - Contusion [Not Recovered/Not Resolved]
  - Fibromyalgia [Unknown]
  - Weight decreased [Unknown]
  - Rash [Unknown]
  - Malaise [Not Recovered/Not Resolved]
  - Musculoskeletal pain [Unknown]
  - Neck pain [Unknown]
  - Feeling hot [Unknown]
  - Pain [Unknown]
  - Eye infection [Recovered/Resolved]
  - Drug ineffective [Not Recovered/Not Resolved]
  - Arthritis [Not Recovered/Not Resolved]
  - Depression [Not Recovered/Not Resolved]
  - Eating disorder [Unknown]
  - Influenza [Unknown]

NARRATIVE: CASE EVENT DATE: 20131005
